FAERS Safety Report 5712601-9 (Version None)
Quarter: 2008Q2

REPORT INFORMATION
  Report Type: 
  Country: None (occurrence: None)
  Receive Date: 20080422
  Receipt Date: 20080411
  Transmission Date: 20081010
  Serious: Yes (Hospitalization, Other)
  Sender: FDA-Public Use
  Company Number: CA-ELI_LILLY_AND_COMPANY-CA200804003483

PATIENT
  Sex: Male

DRUGS (2)
  1. GEMZAR [Suspect]
     Indication: NON-SMALL CELL LUNG CANCER
     Dates: end: 20080101
  2. CARBOPLATIN [Concomitant]

REACTIONS (3)
  - DYSPNOEA [None]
  - EOSINOPHIL COUNT [None]
  - PULMONARY TOXICITY [None]
